FAERS Safety Report 8531003-3 (Version None)
Quarter: 2012Q3

REPORT INFORMATION
  Report Type: 
  Country: None (occurrence: None)
  Receive Date: 20120710
  Receipt Date: 20120626
  Transmission Date: 20120928
  Serious: Yes (Other)
  Sender: FDA-Public Use
  Company Number: USA/USA/12/0024890

PATIENT
  Age: 56 Year
  Sex: Female

DRUGS (5)
  1. LEVOFLOXACIN [Suspect]
     Indication: STREPTOCOCCAL INFECTION
     Dosage: 250 MG, 1 IN 1 D
  2. PREDNISONE TAB [Suspect]
     Indication: CHRONIC GRAFT VERSUS HOST DISEASE
     Dosage: 10 MG, 1 IN 1 D
  3. BACTRIM [Concomitant]
  4. FLUCONAZOLE [Concomitant]
  5. PENTAMIDINE (PENTAMIDINE) [Concomitant]

REACTIONS (17)
  - CLOSTRIDIAL INFECTION [None]
  - ABDOMINAL PAIN [None]
  - HYPOTENSION [None]
  - BLOOD LACTIC ACID INCREASED [None]
  - PNEUMOCYSTIS JIROVECI PNEUMONIA [None]
  - MENTAL STATUS CHANGES [None]
  - TACHYCARDIA [None]
  - HYPERCAPNIA [None]
  - SEPTIC SHOCK [None]
  - HYPOXIA [None]
  - ABDOMINAL DISTENSION [None]
  - PATHOGEN RESISTANCE [None]
  - RESPIRATORY FAILURE [None]
  - DIARRHOEA [None]
  - URINARY TRACT INFECTION ENTEROCOCCAL [None]
  - RESPIRATORY MUSCLE WEAKNESS [None]
  - CONFUSIONAL STATE [None]
